FAERS Safety Report 4341020-5 (Version None)
Quarter: 2004Q2

REPORT INFORMATION
  Report Type: 
  Country: None (occurrence: None)
  Receive Date: 20040413
  Receipt Date: 20040401
  Transmission Date: 20050107
  Serious: Yes (Hospitalization)
  Sender: FDA-Public Use
  Company Number: 2004022773

PATIENT
  Age: 79 Year
  Sex: Female

DRUGS (6)
  1. TAHOR (ATORVASTATIN) [Suspect]
     Indication: ILL-DEFINED DISORDER
     Dosage: 40 MG (DAILY), ORAL
     Route: 048
  2. PIRACETAM     (PIRACETAM) [Suspect]
     Indication: ILL-DEFINED DISORDER
     Dosage: 800 MG (DAILY), ORAL
     Route: 048
  3. DONEPEZIL HCL [Suspect]
     Indication: ILL-DEFINED DISORDER
     Dosage: 5 MG (DAILY), ORAL
     Route: 048
     Dates: start: 20031201, end: 20040211
  4. ISRADIPINE       (ISRADIPINE) [Concomitant]
  5. DIOSMIN (DIOSMIN) [Concomitant]
  6. VERAPAMIL [Concomitant]

REACTIONS (8)
  - BRADYCARDIA [None]
  - CONFUSIONAL STATE [None]
  - DYSARTHRIA [None]
  - ENDOCRINE DISORDER [None]
  - GENERAL PHYSICAL HEALTH DETERIORATION [None]
  - HYPOTENSION [None]
  - HYPOTHERMIA [None]
  - NERVOUS SYSTEM DISORDER [None]
